FAERS Safety Report 7184104-9 (Version None)
Quarter: 2010Q4

REPORT INFORMATION
  Report Type: 
  Country: None (occurrence: None)
  Receive Date: 20101222
  Receipt Date: 20101209
  Transmission Date: 20110411
  Serious: Yes (Death, Hospitalization, Other)
  Sender: FDA-Public Use
  Company Number: JP-CELGENEUS-087-21880-10110108

PATIENT
  Age: 67 Year
  Sex: Female

DRUGS (19)
  1. REVLIMID [Suspect]
     Indication: MULTIPLE MYELOMA
     Route: 048
     Dates: start: 20100901, end: 20100914
  2. REVLIMID [Suspect]
     Route: 048
     Dates: start: 20100929, end: 20101005
  3. REVLIMID [Suspect]
     Route: 048
     Dates: start: 20101016, end: 20101022
  4. LENADEX [Suspect]
     Indication: MULTIPLE MYELOMA
     Route: 048
     Dates: start: 20100901, end: 20100914
  5. LENADEX [Suspect]
     Route: 048
     Dates: start: 20101016, end: 20101022
  6. LENADEX [Suspect]
     Route: 048
     Dates: start: 20100922, end: 20101026
  7. DEXART [Suspect]
     Indication: MULTIPLE MYELOMA
     Route: 041
     Dates: start: 20100915, end: 20100921
  8. ADALAT CC [Concomitant]
     Indication: HYPERTENSION
     Route: 048
     Dates: start: 20100901, end: 20100914
  9. ALOSENN [Concomitant]
     Indication: PROPHYLAXIS
     Route: 048
     Dates: start: 20100918, end: 20100924
  10. ALOSENN [Concomitant]
     Route: 048
     Dates: start: 20101014, end: 20101020
  11. OXYCONTIN [Concomitant]
     Route: 048
     Dates: start: 20100901, end: 20100914
  12. OXINORM [Concomitant]
     Route: 048
     Dates: start: 20100915
  13. GOODMIN [Concomitant]
     Route: 048
     Dates: start: 20100901, end: 20101026
  14. STARSIS [Concomitant]
     Indication: DIABETES MELLITUS
     Route: 048
     Dates: start: 20100901, end: 20100914
  15. STARSIS [Concomitant]
     Route: 048
     Dates: start: 20100929, end: 20101005
  16. BAKTAR [Concomitant]
     Indication: PROPHYLAXIS
     Route: 048
     Dates: start: 20101020, end: 20101026
  17. BAKTAR [Concomitant]
     Indication: PNEUMONIA
  18. PARIET [Concomitant]
     Indication: PROPHYLAXIS
     Route: 048
     Dates: start: 20100901, end: 20101026
  19. PURSENNID [Concomitant]
     Indication: PROPHYLAXIS
     Route: 048
     Dates: start: 20100901, end: 20101013

REACTIONS (7)
  - CYTOMEGALOVIRUS INFECTION [None]
  - HYPOKALAEMIA [None]
  - NEUTROPHIL COUNT DECREASED [None]
  - PANCYTOPENIA [None]
  - PNEUMONIA [None]
  - RENAL IMPAIRMENT [None]
  - THROMBOCYTOPENIA [None]
